FAERS Safety Report 10595927 (Version 1)
Quarter: 2014Q4

REPORT INFORMATION
  Report Type: Spontaneous
  Country: US (occurrence: US)
  Receive Date: 20141120
  Receipt Date: 20141120
  Transmission Date: 20150529
  Serious: No
  Sender: FDA-Public Use
  Company Number: US-PFIZER INC-2014315402

PATIENT
  Age: 51 Year
  Sex: Female
  Weight: 80 kg

DRUGS (3)
  1. LYSINE [Concomitant]
     Active Substance: LYSINE
     Indication: ORAL HERPES
     Dosage: 500 MG, EVERY DAY
     Route: 048
  2. ADVIL MIGRAINE [Suspect]
     Active Substance: IBUPROFEN
     Indication: MIGRAINE
     Dosage: 200 MG, ONCE
     Route: 048
     Dates: start: 20141109, end: 20141109
  3. MELOXICAM. [Concomitant]
     Active Substance: MELOXICAM
     Indication: OSTEOARTHRITIS
     Dosage: 15 MG, EVERY DAY
     Route: 048

REACTIONS (4)
  - Dry skin [Unknown]
  - Urticaria [Not Recovered/Not Resolved]
  - Pruritus [Unknown]
  - Scratch [Unknown]

NARRATIVE: CASE EVENT DATE: 20141110
